FAERS Safety Report 16570783 (Version 1)
Quarter: 2019Q3

REPORT INFORMATION
  Report Type: Spontaneous
  Country: US (occurrence: US)
  Receive Date: 20190715
  Receipt Date: 20190715
  Transmission Date: 20191004
  Serious: Yes (Other)
  Sender: FDA-Public Use
  Company Number: US-GLAXOSMITHKLINE-US2019123771

PATIENT
  Age: 54 Year
  Sex: Female

DRUGS (1)
  1. ANORO ELLIPTA [Suspect]
     Active Substance: UMECLIDINIUM BROMIDE\VILANTEROL TRIFENATATE
     Indication: PRODUCT USED FOR UNKNOWN INDICATION
     Dosage: 1 PUFF(S), QD
     Route: 065
     Dates: start: 201903

REACTIONS (11)
  - Chest discomfort [Unknown]
  - Retching [Unknown]
  - Presyncope [Unknown]
  - Musculoskeletal stiffness [Unknown]
  - Pulmonary oedema [Unknown]
  - Condition aggravated [Unknown]
  - Anxiety [Recovered/Resolved]
  - Dyspnoea [Not Recovered/Not Resolved]
  - Dry mouth [Unknown]
  - Middle insomnia [Unknown]
  - Cough [Unknown]

NARRATIVE: CASE EVENT DATE: 20190706
